FAERS Safety Report 8372855-X (Version None)
Quarter: 2012Q2

REPORT INFORMATION
  Report Type: 
  Country: None (occurrence: None)
  Receive Date: 20120521
  Receipt Date: 20120515
  Transmission Date: 20120825
  Serious: Yes (Other)
  Sender: FDA-Public Use
  Company Number: CO-PFIZER INC-2012120200

PATIENT
  Age: 12 Year
  Sex: Female

DRUGS (1)
  1. GENOTROPIN [Suspect]
     Indication: BODY HEIGHT BELOW NORMAL
     Dosage: UNK
     Dates: start: 20100101, end: 20110101

REACTIONS (5)
  - HELICOBACTER INFECTION [None]
  - ABDOMINAL PAIN [None]
  - DARK CIRCLES UNDER EYES [None]
  - GASTRITIS [None]
  - ASTHENIA [None]
